FAERS Safety Report 18056415 (Version 20)
Quarter: 2025Q1

REPORT INFORMATION
  Report Type: Report from Study
  Country: US (occurrence: US)
  Receive Date: 20200722
  Receipt Date: 20250317
  Transmission Date: 20250409
  Serious: Yes (Other)
  Sender: TAKEDA
  Company Number: US-SHIRE-US202023561

PATIENT
  Sex: Female
  Weight: 44 kg

DRUGS (20)
  1. HUMAN IMMUNOGLOBULIN G [Suspect]
     Active Substance: HUMAN IMMUNOGLOBULIN G
     Indication: Immunodeficiency common variable
     Dosage: 5 GRAM, 1/WEEK
     Dates: start: 20111215
  2. HUMAN IMMUNOGLOBULIN G [Suspect]
     Active Substance: HUMAN IMMUNOGLOBULIN G
     Dosage: 5 GRAM, 1/WEEK
     Dates: start: 20120112
  3. HUMAN IMMUNOGLOBULIN G [Suspect]
     Active Substance: HUMAN IMMUNOGLOBULIN G
     Dosage: 5 GRAM, 1/WEEK
     Dates: start: 20120612
  4. FAMOTIDINE [Suspect]
     Active Substance: FAMOTIDINE
     Indication: Product used for unknown indication
  5. MUCINEX [Suspect]
     Active Substance: GUAIFENESIN
     Indication: Product used for unknown indication
  6. DIPHENHYDRAMINE [Concomitant]
     Active Substance: DIPHENHYDRAMINE
  7. CARVEDILOL [Concomitant]
     Active Substance: CARVEDILOL
  8. FUROSEMIDE [Concomitant]
     Active Substance: FUROSEMIDE
  9. ADVIL [Concomitant]
     Active Substance: IBUPROFEN
  10. EPINEPHRINE [Concomitant]
     Active Substance: EPINEPHRINE
  11. LIDOCAINE\PRILOCAINE [Concomitant]
     Active Substance: LIDOCAINE\PRILOCAINE
  12. MOMETASONE FUROATE [Concomitant]
     Active Substance: MOMETASONE FUROATE
  13. AMLODIPINE BESYLATE [Concomitant]
     Active Substance: AMLODIPINE BESYLATE
  14. SALAGEN [Concomitant]
     Active Substance: PILOCARPINE HYDROCHLORIDE
  15. DOXYLAMINE SUCCINATE [Concomitant]
     Active Substance: DOXYLAMINE SUCCINATE
  16. Lmx [Concomitant]
  17. BENICAR [Concomitant]
     Active Substance: OLMESARTAN MEDOXOMIL
  18. LIDOCAINE [Concomitant]
     Active Substance: LIDOCAINE
  19. PREDNISONE [Concomitant]
     Active Substance: PREDNISONE
  20. DIPHENHYDRAMINE HYDROCHLORIDE [Concomitant]
     Active Substance: DIPHENHYDRAMINE HYDROCHLORIDE

REACTIONS (33)
  - Post procedural haemorrhage [Unknown]
  - Asthenia [Unknown]
  - Infusion site pruritus [Unknown]
  - Hyperhidrosis [Unknown]
  - Nausea [Unknown]
  - Viral infection [Not Recovered/Not Resolved]
  - Bacterial infection [Unknown]
  - Red blood cell sedimentation rate increased [Unknown]
  - Throat irritation [Unknown]
  - COVID-19 [Not Recovered/Not Resolved]
  - Weight decreased [Unknown]
  - Polyp [Unknown]
  - Gastritis [Unknown]
  - Uterine leiomyoma [Unknown]
  - Gastrointestinal infection [Unknown]
  - Eye irritation [Unknown]
  - Ocular hyperaemia [Unknown]
  - Flatulence [Unknown]
  - Dermatitis contact [Unknown]
  - Product dose omission issue [Unknown]
  - Nasopharyngitis [Unknown]
  - Bronchitis [Not Recovered/Not Resolved]
  - Oropharyngeal discomfort [Unknown]
  - Sinus disorder [Unknown]
  - Respiratory tract infection [Unknown]
  - Abdominal discomfort [Unknown]
  - Pain [Unknown]
  - Abdominal distension [Unknown]
  - Oropharyngeal pain [Not Recovered/Not Resolved]
  - Blood pressure increased [Unknown]
  - Cough [Unknown]
  - Diarrhoea [Unknown]
  - Fatigue [Unknown]
